FAERS Safety Report 5097965-4 (Version None)
Quarter: 2006Q3

REPORT INFORMATION
  Report Type: 
  Country: None (occurrence: None)
  Receive Date: 20060905
  Receipt Date: 20060905
  Transmission Date: 20061208
  Serious: No
  Sender: FDA-Public Use
  Company Number: None

PATIENT
  Sex: Female

DRUGS (1)
  1. MEDROXYPROGESTERONE [Suspect]
     Dosage: 150MG Q 3 MONTHS IM
     Route: 030
     Dates: start: 20060831

REACTIONS (1)
  - DEVICE FAILURE [None]
